FAERS Safety Report 19178667 (Version 1)
Quarter: 2021Q2

REPORT INFORMATION
  Report Type: Spontaneous
  Country: US (occurrence: US)
  Receive Date: 20210421
  Receipt Date: 20210421
  Transmission Date: 20210717
  Serious: Yes (Disabling)
  Sender: FDA-Public Use
  Company Number: None

PATIENT
  Age: 56 Year
  Sex: Male
  Weight: 85.5 kg

DRUGS (5)
  1. SELENIUM [Concomitant]
     Active Substance: SELENIUM
  2. ONE?A?DAY VITAMINS [Concomitant]
  3. NO DRIP NASAL MIST NASAL DECONGESTANT SEVERE CONGESTION [Suspect]
     Active Substance: OXYMETAZOLINE HYDROCHLORIDE
     Indication: RHINITIS ALLERGIC
     Dosage: ?          QUANTITY:1 OUNCE(S);?
     Route: 055
     Dates: start: 20210201, end: 20210301
  4. MSM [Concomitant]
     Active Substance: DIMETHYL SULFONE
  5. OXYMETAZOLINE HCL [Concomitant]
     Active Substance: OXYMETAZOLINE HYDROCHLORIDE

REACTIONS (3)
  - Product contamination microbial [None]
  - Product contamination [None]
  - Nasal congestion [None]

NARRATIVE: CASE EVENT DATE: 20210201
